FAERS Safety Report 6302723-6 (Version None)
Quarter: 2009Q3

REPORT INFORMATION
  Report Type: 
  Country: None (occurrence: None)
  Receive Date: 20090810
  Receipt Date: 20090730
  Transmission Date: 20100115
  Serious: Yes (Other)
  Sender: FDA-Public Use
  Company Number: PHHY2009CR32358

PATIENT
  Age: 42 Year
  Sex: Male

DRUGS (1)
  1. VOLTAREN [Suspect]
     Dosage: 75 MG, UNK
     Route: 030

REACTIONS (3)
  - APPLICATION SITE HAEMATOMA [None]
  - APPLICATION SITE PAIN [None]
  - INJECTION SITE CALCIFICATION [None]
